FAERS Safety Report 5126487-7 (Version None)
Quarter: 2006Q4

REPORT INFORMATION
  Report Type: 
  Country: None (occurrence: None)
  Receive Date: 20061010
  Receipt Date: 20060912
  Transmission Date: 20070319
  Serious: Yes (Other)
  Sender: FDA-Public Use
  Company Number: 2006076272

PATIENT
  Age: 53 Year
  Sex: Male
  Weight: 235 kg

DRUGS (4)
  1. BEXTRA [Suspect]
     Dosage: 10 MG (10 MG, 1 IN 1 D), ORAL
     Route: 048
     Dates: start: 20030729, end: 20031130
  2. VIOXX [Suspect]
     Dosage: 50 MG (50 MG, 1 IN 1 D), ORAL
     Route: 048
     Dates: start: 20010711, end: 20030901
  3. INSULIN (INSULIN) [Concomitant]
  4. ORAL ANTIDIABETICS (ORAL ANTIDIABETICS) [Concomitant]

REACTIONS (3)
  - CEREBROVASCULAR ACCIDENT [None]
  - DEEP VEIN THROMBOSIS [None]
  - PULMONARY EMBOLISM [None]
